FAERS Safety Report 10915880 (Version 2)
Quarter: 2015Q1

REPORT INFORMATION
  Report Type: Spontaneous
  Country: US (occurrence: US)
  Receive Date: 20150316
  Receipt Date: 20150326
  Transmission Date: 20150721
  Serious: Yes (Other)
  Sender: FDA-Public Use
  Company Number: US-SA-2015SA030528

PATIENT
  Age: 55 Year
  Sex: Female
  Weight: 83.46 kg

DRUGS (6)
  1. SOLOSTAR [Concomitant]
     Active Substance: DEVICE
  2. SOLOSTAR [Concomitant]
     Active Substance: DEVICE
     Dates: start: 20150306, end: 20150306
  3. LANTUS SOLOSTAR [Suspect]
     Active Substance: INSULIN GLARGINE
     Indication: TYPE 1 DIABETES MELLITUS
     Dosage: DOSE:28 UNIT(S)
     Route: 065
     Dates: end: 20150304
  4. LANTUS SOLOSTAR [Suspect]
     Active Substance: INSULIN GLARGINE
     Indication: TYPE 1 DIABETES MELLITUS
     Dosage: DOSE:28 UNIT(S)
     Route: 065
     Dates: start: 20150308
  5. SOLOSTAR [Concomitant]
     Active Substance: DEVICE
     Dates: start: 20150308
  6. LANTUS SOLOSTAR [Suspect]
     Active Substance: INSULIN GLARGINE
     Indication: TYPE 1 DIABETES MELLITUS
     Dosage: PARTIAL DOSE
     Route: 065
     Dates: start: 20150306, end: 20150306

REACTIONS (2)
  - Underdose [Unknown]
  - Dialysis [Unknown]

NARRATIVE: CASE EVENT DATE: 2014
